FAERS Safety Report 6529555-8 (Version None)
Quarter: 2010Q1

REPORT INFORMATION
  Report Type: 
  Country: None (occurrence: None)
  Receive Date: 20100107
  Receipt Date: 20091230
  Transmission Date: 20100710
  Serious: Yes (Hospitalization, Other)
  Sender: FDA-Public Use
  Company Number: US-ELI_LILLY_AND_COMPANY-US200912006339

PATIENT
  Age: 72 Year
  Sex: Female

DRUGS (1)
  1. GEMZAR [Suspect]
     Indication: BLADDER CANCER
     Dosage: UNK, TWO WEEKS ON/ONE WEEK OFF

REACTIONS (8)
  - ABDOMINAL PAIN [None]
  - ASTHENIA [None]
  - BLOOD COUNT ABNORMAL [None]
  - DIARRHOEA [None]
  - HAEMORRHAGE [None]
  - NAUSEA [None]
  - RASH [None]
  - RENAL IMPAIRMENT [None]
